FAERS Safety Report 13591679 (Version 2)
Quarter: 2020Q3

REPORT INFORMATION
  Report Type: Report from Study
  Country: CN (occurrence: CN)
  Receive Date: 20170530
  Receipt Date: 20170609
  Transmission Date: 20201105
  Serious: Yes (Hospitalization)
  Sender: FDA-Public Use
  Company Number: CN-ROCHE-1936866

PATIENT
  Age: 44 Year
  Sex: Male
  Weight: 67 kg

DRUGS (11)
  1. CARBAZOCHROME SODIUM SULFONATE [Concomitant]
     Active Substance: CARBAZOCHROME SODIUM SULFONATE
     Indication: HAEMOPTYSIS
     Route: 065
     Dates: start: 20170524, end: 20170601
  2. DIPHENHYDRAMINE HYDROCHLORIDE. [Concomitant]
     Active Substance: DIPHENHYDRAMINE HYDROCHLORIDE
     Route: 065
     Dates: start: 20170516, end: 20170516
  3. ALECTINIB. [Suspect]
     Active Substance: ALECTINIB
     Indication: NON-SMALL CELL LUNG CANCER
     Dosage: MOST RECENT DOSE: 15/MAY/2017
     Route: 048
     Dates: start: 20170120
  4. GLUCUROLACTONE [Concomitant]
     Active Substance: GLUCUROLACTONE
     Route: 065
     Dates: start: 20170120
  5. ALECTINIB. [Suspect]
     Active Substance: ALECTINIB
     Dosage: DOSE REDUCED
     Route: 048
  6. MONTMORILLONITE [Concomitant]
     Active Substance: MONTMORILLONITE
     Indication: DIARRHOEA
     Route: 065
     Dates: start: 20170514, end: 20170518
  7. OMEPRAZOLE SODIUM [Concomitant]
     Active Substance: OMEPRAZOLE SODIUM
     Route: 065
     Dates: start: 20170516, end: 20170523
  8. ISOSORBIDE MONONITRATE. [Concomitant]
     Active Substance: ISOSORBIDE MONONITRATE
     Route: 065
     Dates: start: 20170203
  9. METOCLOPRAMIDE DIHYDROCHLORIDE [Concomitant]
     Route: 065
     Dates: start: 20170516, end: 20170516
  10. SODIUM CHLORIDE. [Concomitant]
     Active Substance: SODIUM CHLORIDE
     Indication: HAEMOPTYSIS
     Route: 065
     Dates: start: 20170524, end: 20170601
  11. POLYENE PHOSPHATIDYLCHOLINE [Concomitant]
     Active Substance: PHOSPHOLIPID
     Indication: HYPERBILIRUBINAEMIA
     Route: 065
     Dates: start: 20170516, end: 20170523

REACTIONS (1)
  - Upper respiratory tract infection [Recovered/Resolved]

NARRATIVE: CASE EVENT DATE: 20170516
